FAERS Safety Report 8781332 (Version 6)
Quarter: 2012Q4

REPORT INFORMATION
  Report Type: 
  Country: CA (occurrence: US)
  Receive Date: 20120913
  Receipt Date: 20121010
  Transmission Date: 20130627
  Serious: Yes (Disabling, Other)
  Sender: FDA-Public Use
  Company Number: US-ASTRAZENECA-2012SE69929

PATIENT
  Age: 60 Year
  Sex: Male
  Weight: 70.3 kg

DRUGS (5)
  1. PRILOSEC OTC [Suspect]
     Indication: GASTRIC DISORDER
     Dosage: 20 MG ONE TABLET IN THE MORNING AND ONE AT NIGHT (TWICE A DAY)
     Route: 048
     Dates: start: 20120813, end: 20120824
  2. PRILOSEC OTC [Suspect]
     Indication: GASTRIC ULCER
     Dosage: 20 MG ONE TABLET IN THE MORNING AND ONE AT NIGHT (TWICE A DAY)
     Route: 048
     Dates: start: 20120813, end: 20120824
  3. PRILOSEC OTC [Suspect]
     Indication: ABDOMINAL DISCOMFORT
     Dosage: 20 MG ONE TABLET IN THE MORNING AND ONE AT NIGHT (TWICE A DAY)
     Route: 048
     Dates: start: 20120813, end: 20120824
  4. VITAMIN C [Concomitant]
     Indication: ROUTINE HEALTH MAINTENANCE
  5. MULTIVITAMIN [Concomitant]
     Indication: ROUTINE HEALTH MAINTENANCE
     Dosage: DAILY

REACTIONS (16)
  - Hypertension [Recovered/Resolved]
  - Dry skin [Recovering/Resolving]
  - Pain in extremity [Not Recovered/Not Resolved]
  - Limb discomfort [Unknown]
  - Oedema peripheral [Not Recovered/Not Resolved]
  - Rash [Recovered/Resolved]
  - Urticaria [Unknown]
  - Erythema [Unknown]
  - Pruritus [Unknown]
  - Fatigue [Not Recovered/Not Resolved]
  - Gait disturbance [Recovered/Resolved]
  - Gait disturbance [Unknown]
  - Activities of daily living impaired [Unknown]
  - Headache [Recovered/Resolved]
  - Insomnia [Unknown]
  - Off label use [Unknown]
